FAERS Safety Report 10843251 (Version 1)
Quarter: 2015Q1

REPORT INFORMATION
  Report Type: Report from Study
  Country: US (occurrence: US)
  Receive Date: 20150220
  Receipt Date: 20150220
  Transmission Date: 20150721
  Serious: No
  Sender: FDA-Public Use
  Company Number: US-ABBVIE-14P-163-1272588-00

PATIENT
  Age: 66 Year
  Sex: Female

DRUGS (8)
  1. CARAFATE [Concomitant]
     Active Substance: SUCRALFATE
     Indication: GASTROOESOPHAGEAL REFLUX DISEASE
     Dosage: LIQUID 1 GRAM/10ML
  2. HUMIRA [Suspect]
     Active Substance: ADALIMUMAB
     Indication: RHEUMATOID ARTHRITIS
     Route: 065
     Dates: start: 20140605, end: 20140814
  3. PREDNISONE. [Concomitant]
     Active Substance: PREDNISONE
     Indication: RHEUMATOID ARTHRITIS
  4. HUMIRA [Suspect]
     Active Substance: ADALIMUMAB
     Route: 065
     Dates: start: 2014, end: 20141015
  5. SPIRONOLACTONE. [Concomitant]
     Active Substance: SPIRONOLACTONE
     Indication: LUNG DISORDER
     Dosage: SHE THINKS 25MG - 1/2 PILL DAILY
  6. ZITHROMAX [Concomitant]
     Active Substance: AZITHROMYCIN DIHYDRATE
     Indication: LOWER RESPIRATORY TRACT INFLAMMATION
     Dosage: ONE PILL EVERY OTHER DAY; STARTED AT THE SAME TIME AS HUMIRA
     Dates: start: 201406
  7. SALINE [Concomitant]
     Active Substance: SODIUM CHLORIDE
     Indication: LUNG DISORDER
  8. BROVANA [Concomitant]
     Active Substance: ARFORMOTEROL TARTRATE
     Indication: LUNG DISORDER
     Dosage: PER NEBULIZER

REACTIONS (3)
  - Sinusitis [Recovering/Resolving]
  - Sinusitis [Recovering/Resolving]
  - Rheumatoid lung [Not Recovered/Not Resolved]

NARRATIVE: CASE EVENT DATE: 20140807
